FAERS Safety Report 9190516 (Version 2)
Quarter: 2013Q1

REPORT INFORMATION
  Report Type: Spontaneous
  Country: US (occurrence: US)
  Receive Date: 20130326
  Receipt Date: 20130329
  Transmission Date: 20140127
  Serious: No
  Sender: FDA-Public Use
  Company Number: US-009507513-1303USA012573

PATIENT
  Sex: Female
  Weight: 58.96 kg

DRUGS (3)
  1. MIRALAX [Suspect]
     Indication: CONSTIPATION PROPHYLAXIS
     Dosage: UNK, UNKNOWN
     Route: 048
     Dates: start: 2010
  2. MIRALAX [Suspect]
     Indication: MEDICAL OBSERVATION
  3. AMITIZA [Suspect]
     Dosage: UNK, UNKNOWN

REACTIONS (4)
  - Constipation [Unknown]
  - Incorrect drug administration duration [Unknown]
  - Drug ineffective [Unknown]
  - Incorrect drug administration duration [Unknown]
